FAERS Safety Report 19645271 (Version 3)
Quarter: 2021Q3

REPORT INFORMATION
  Report Type: Spontaneous
  Country: US (occurrence: US)
  Receive Date: 20210802
  Receipt Date: 20210831
  Transmission Date: 20211014
  Serious: No
  Sender: FDA-Public Use
  Company Number: US-LUPIN PHARMACEUTICALS INC.-2021-13115

PATIENT
  Sex: Female
  Weight: 77.1 kg

DRUGS (3)
  1. PHENELZINE TABLET 15 MG [Suspect]
     Active Substance: PHENELZINE
     Indication: DEPRESSION
  2. PHENELZINE TABLET 15 MG [Suspect]
     Active Substance: PHENELZINE
     Indication: ANXIETY
     Dosage: UNK,TWO TABLETS IN THE MORNING, ONE TABLET AT 11:00 AM, ONE AT 03:00 PM AND LAST ONE TABLET AT 7:00
     Route: 048
     Dates: start: 20210525
  3. XANAX [Concomitant]
     Active Substance: ALPRAZOLAM
     Indication: SUPPLEMENTATION THERAPY
     Dosage: 2 DOSAGE FORM, QD, (AT NIGHT TIME, STARTED YEARS AGO), XANAX XR 0.5
     Route: 065

REACTIONS (6)
  - Product substitution issue [Unknown]
  - Depression [Unknown]
  - Loss of personal independence in daily activities [Unknown]
  - Product quality issue [Unknown]
  - Anxiety [Unknown]
  - Drug ineffective [Unknown]

NARRATIVE: CASE EVENT DATE: 2021
